FAERS Safety Report 6332345-2 (Version None)
Quarter: 2009Q3

REPORT INFORMATION
  Report Type: 
  Country: None (occurrence: None)
  Receive Date: 20090827
  Receipt Date: 20090827
  Transmission Date: 20100115
  Serious: Yes (Other)
  Sender: FDA-Public Use
  Company Number: None

PATIENT
  Sex: Male
  Weight: 54.4316 kg

DRUGS (2)
  1. LAMOTRIGINE [Suspect]
     Indication: MYOCLONIC EPILEPSY
     Dosage: 300 MG PO BID
     Route: 048
     Dates: start: 20081201
  2. LEVETIRACETAM [Suspect]
     Indication: MYOCLONIC EPILEPSY
     Dosage: 1500 MG PO BID
     Route: 048
     Dates: start: 20081201

REACTIONS (2)
  - MYOCLONIC EPILEPSY [None]
  - PRODUCT SUBSTITUTION ISSUE [None]
